FAERS Safety Report 9460787 (Version 1)
Quarter: 2013Q3

REPORT INFORMATION
  Report Type: Spontaneous
  Country: US (occurrence: US)
  Receive Date: 20130815
  Receipt Date: 20130815
  Transmission Date: 20140515
  Serious: Yes (Hospitalization)
  Sender: FDA-Public Use
  Company Number: US-B.I. PHARMACEUTICALS,INC./RIDGEFIELD-2013-BI-24082BP

PATIENT
  Age: 76 Year
  Sex: Male
  Weight: 56 kg

DRUGS (3)
  1. SPIRIVA [Suspect]
     Indication: CHRONIC OBSTRUCTIVE PULMONARY DISEASE
     Dosage: 18 MCG
     Route: 055
     Dates: start: 201305
  2. COLACE [Concomitant]
     Dosage: 100 MG
     Route: 048
  3. FUROSEMIDE [Concomitant]
     Indication: FLUID RETENTION
     Dosage: 10 MG
     Route: 048

REACTIONS (1)
  - Bone neoplasm [Recovered/Resolved]
